FAERS Safety Report 12908168 (Version 3)
Quarter: 2017Q2

REPORT INFORMATION
  Report Type: Spontaneous
  Country: FR (occurrence: FR)
  Receive Date: 20161103
  Receipt Date: 20170421
  Transmission Date: 20170830
  Serious: Yes (Other)
  Sender: FDA-Public Use
  Company Number: FR-ABBVIE-16P-056-1766245-00

PATIENT
  Age: 48 Year
  Sex: Male

DRUGS (3)
  1. FIVASA [Suspect]
     Active Substance: MESALAMINE
     Indication: COLITIS
     Route: 048
     Dates: start: 2010
  2. MOPRAL [Suspect]
     Active Substance: OMEPRAZOLE SODIUM
     Indication: COLITIS
     Route: 048
     Dates: start: 2010
  3. HUMIRA [Suspect]
     Active Substance: ADALIMUMAB
     Indication: COLITIS
     Route: 058
     Dates: start: 2010

REACTIONS (2)
  - Uhthoff^s phenomenon [Not Recovered/Not Resolved]
  - Optic neuritis [Not Recovered/Not Resolved]

NARRATIVE: CASE EVENT DATE: 201604
